FAERS Safety Report 8857476 (Version 1)
Quarter: 2012Q4

REPORT INFORMATION
  Report Type: 
  Country: US (occurrence: US)
  Receive Date: 20121024
  Receipt Date: 20121024
  Transmission Date: 20130627
  Serious: No
  Sender: FDA-Public Use
  Company Number: US-ROCHE-GNE204195

PATIENT
  Age: 51 Year
  Sex: Female

DRUGS (2)
  1. RAPTIVA [Suspect]
     Indication: PSORIASIS
     Dosage: .7 mg/kg, single
     Route: 058
     Dates: start: 20040112, end: 20040112
  2. RAPTIVA [Suspect]
     Dosage: 1 mg/kg, 1/Week
     Route: 058

REACTIONS (3)
  - Influenza like illness [Not Recovered/Not Resolved]
  - Headache [Unknown]
  - Injection site haemorrhage [Unknown]
